FAERS Safety Report 6435679-6 (Version None)
Quarter: 2009Q4

REPORT INFORMATION
  Report Type: 
  Country: None (occurrence: None)
  Receive Date: 20091111
  Receipt Date: 20091102
  Transmission Date: 20100525
  Serious: Yes (Other)
  Sender: FDA-Public Use
  Company Number: PHHY2009AU24747

PATIENT
  Sex: Female

DRUGS (3)
  1. EXELON [Suspect]
     Indication: DEMENTIA ALZHEIMER'S TYPE
     Dosage: UNK
     Route: 062
     Dates: start: 20090109
  2. EXELON [Suspect]
     Dosage: 3 MG, UNK
     Route: 048
  3. EXELON [Suspect]
     Dosage: 1.5 MG, UNK
     Route: 048

REACTIONS (3)
  - APPLICATION SITE ERYTHEMA [None]
  - APPLICATION SITE INFECTION [None]
  - APPLICATION SITE RASH [None]
